FAERS Safety Report 9012112 (Version 1)
Quarter: 2013Q1

REPORT INFORMATION
  Report Type: Spontaneous
  Country: FR (occurrence: FR)
  Receive Date: 20130114
  Receipt Date: 20130114
  Transmission Date: 20140127
  Serious: Yes (Life-Threatening)
  Sender: FDA-Public Use
  Company Number: FR-ROCHE-1176918

PATIENT
  Age: 85 Year
  Sex: Male

DRUGS (10)
  1. ROCEPHINE [Suspect]
     Indication: ARTHRITIS BACTERIAL
     Route: 058
     Dates: start: 20120919, end: 20121112
  2. TRIFLUCAN [Suspect]
     Indication: ORAL FUNGAL INFECTION
     Route: 048
     Dates: start: 20121102, end: 20121112
  3. OFLOCET [Suspect]
     Indication: ARTHRITIS BACTERIAL
     Route: 048
     Dates: start: 20120919, end: 20121112
  4. LOGIMAX [Concomitant]
  5. SERETIDE [Concomitant]
  6. ATACAND [Concomitant]
  7. OMEPRAZOLE [Concomitant]
  8. PREVISCAN [Concomitant]
  9. STILNOX [Concomitant]
  10. TAHOR [Concomitant]

REACTIONS (2)
  - Agranulocytosis [Recovered/Resolved]
  - Purpura [Recovered/Resolved]
